FAERS Safety Report 11602905 (Version 1)
Quarter: 2015Q4

REPORT INFORMATION
  Report Type: Spontaneous
  Country: US (occurrence: US)
  Receive Date: 20151006
  Receipt Date: 20151006
  Transmission Date: 20160304
  Serious: No
  Sender: FDA-Public Use
  Company Number: US-AMGEN-USASP2015071786

PATIENT
  Sex: Female
  Weight: 66.22 kg

DRUGS (1)
  1. PROLIA [Suspect]
     Active Substance: DENOSUMAB
     Indication: OSTEOPOROSIS
     Dosage: UNK, Q6MO
     Route: 030
     Dates: start: 20150417

REACTIONS (3)
  - Hypoaesthesia [Recovered/Resolved]
  - Chest discomfort [Recovered/Resolved]
  - Incorrect route of drug administration [Unknown]

NARRATIVE: CASE EVENT DATE: 20150417
